FAERS Safety Report 5476313-1 (Version None)
Quarter: 2007Q4

REPORT INFORMATION
  Report Type: 
  Country: None (occurrence: None)
  Receive Date: 20071003
  Receipt Date: 20070925
  Transmission Date: 20080405
  Serious: Yes (Hospitalization, Other)
  Sender: FDA-Public Use
  Company Number: US-PFIZER INC-2006151979

PATIENT
  Sex: Male
  Weight: 113.4 kg

DRUGS (6)
  1. CELEBREX [Suspect]
     Indication: OSTEOARTHRITIS
  2. CELEBREX [Suspect]
     Indication: RHEUMATOID ARTHRITIS
  3. BEXTRA [Suspect]
     Indication: OSTEOARTHRITIS
     Dates: start: 20031117
  4. BEXTRA [Suspect]
     Indication: RHEUMATOID ARTHRITIS
  5. VIOXX [Suspect]
     Indication: OSTEOARTHRITIS
     Route: 048
  6. VIOXX [Suspect]
     Indication: RHEUMATOID ARTHRITIS

REACTIONS (1)
  - CEREBROVASCULAR ACCIDENT [None]
